FAERS Safety Report 23512995 (Version 1)
Quarter: 2024Q1

REPORT INFORMATION
  Report Type: Spontaneous
  Country: US (occurrence: US)
  Receive Date: 20240212
  Receipt Date: 20240212
  Transmission Date: 20240410
  Serious: No
  Sender: FDA-Public Use
  Company Number: US-ARCUTIS BIOTHERAPEUTICS INC-2023AER000204

PATIENT
  Age: 40 Year
  Sex: Male

DRUGS (1)
  1. ZORYVE [Suspect]
     Active Substance: ROFLUMILAST
     Indication: Product used for unknown indication
     Dosage: UNK 2-3 TIMES A WEEK
     Route: 061

REACTIONS (2)
  - Influenza like illness [Recovered/Resolved]
  - Inappropriate schedule of product administration [Unknown]
